FAERS Safety Report 4937980-1 (Version None)
Quarter: 2006Q1

REPORT INFORMATION
  Report Type: 
  Country: None (occurrence: None)
  Receive Date: 20060309
  Receipt Date: 20050627
  Transmission Date: 20060701
  Serious: No
  Sender: FDA-Public Use
  Company Number: US-BRISTOL-MYERS SQUIBB COMPANY-13016191

PATIENT
  Sex: Female
  Weight: 62 kg

DRUGS (1)
  1. VAGISTAT-1 [Suspect]
     Dates: start: 20050626, end: 20050626

REACTIONS (3)
  - BLADDER PAIN [None]
  - BURNING SENSATION [None]
  - PRURITUS [None]
